FAERS Safety Report 6974274-7 (Version None)
Quarter: 2010Q3

REPORT INFORMATION
  Report Type: 
  Country: None (occurrence: None)
  Receive Date: 20100909
  Receipt Date: 20100713
  Transmission Date: 20110219
  Serious: Yes (Hospitalization)
  Sender: FDA-Public Use
  Company Number: PHHO2010CZ08341

PATIENT
  Sex: Male
  Weight: 77 kg

DRUGS (2)
  1. CERTICAN [Suspect]
     Indication: LIVER TRANSPLANT
     Dosage: 2 MG/24 HR
     Route: 048
  2. TACROLIMUS COMP-TAC+ [Suspect]
     Indication: LIVER TRANSPLANT
     Dosage: 3 MG/ 24 HR
     Route: 048
     Dates: start: 20091222

REACTIONS (3)
  - BILIARY ANASTOMOSIS COMPLICATION [None]
  - BILIARY TRACT DISORDER [None]
  - SURGERY [None]
